FAERS Safety Report 15051818 (Version 1)
Quarter: 2018Q2

REPORT INFORMATION
  Report Type: Spontaneous
  Country: US (occurrence: US)
  Receive Date: 20180622
  Receipt Date: 20180622
  Transmission Date: 20180711
  Serious: No
  Sender: FDA-Public Use
  Company Number: US-AMGEN-USASP2011020415

PATIENT
  Sex: Male

DRUGS (2)
  1. XGEVA [Suspect]
     Active Substance: DENOSUMAB
     Indication: METASTASES TO BONE
     Dosage: UNK
  2. CASODEX [Suspect]
     Active Substance: BICALUTAMIDE
     Dosage: UNK

REACTIONS (3)
  - Gastrointestinal disorder [Unknown]
  - Rash pruritic [Unknown]
  - Gastrointestinal pain [Unknown]
